FAERS Safety Report 9515935 (Version 1)
Quarter: 2013Q1

REPORT INFORMATION
  Report Type: Spontaneous
  Country: US (occurrence: None)
  Receive Date: 20130305
  Receipt Date: 20130305
  Transmission Date: 20140127
  Serious: Yes (Hospitalization, Other)
  Sender: FDA-Public Use
  Company Number: 163-21880-12113243

PATIENT
  Age: 65 Year
  Sex: Male

DRUGS (3)
  1. REVLIMID (LENALIDOMIDE) (CAPSULES) [Suspect]
     Indication: PLASMA CELL MYELOMA
     Route: 048
     Dates: start: 20121002
  2. MORPHINE SULFATE (MORPHINE SULFATE) (UNKNOWN) [Concomitant]
  3. PROMETHAZINE HCL (PROMETHAZINE HYDROCHLORIDE) (UNKNOWN) [Concomitant]

REACTIONS (2)
  - Pulmonary thrombosis [None]
  - Constipation [None]
